FAERS Safety Report 8314565-0 (Version None)
Quarter: 2012Q2

REPORT INFORMATION
  Report Type: 
  Country: None (occurrence: None)
  Receive Date: 20120426
  Receipt Date: 20120417
  Transmission Date: 20120825
  Serious: Yes (Other)
  Sender: FDA-Public Use
  Company Number: US-ASTRAZENECA-2012SE25428

PATIENT
  Age: 21 Year
  Sex: Male

DRUGS (2)
  1. NEXIUM [Suspect]
     Route: 048
  2. 15 MEDICATIONS [Concomitant]
     Dosage: DAILY

REACTIONS (1)
  - CYSTIC FIBROSIS [None]
